FAERS Safety Report 10133124 (Version 1)
Quarter: 2014Q2

REPORT INFORMATION
  Report Type: Spontaneous
  Country: US (occurrence: US)
  Receive Date: 20140428
  Receipt Date: 20140428
  Transmission Date: 20141212
  Serious: No
  Sender: FDA-Public Use
  Company Number: US-PFIZER INC-2014116205

PATIENT
  Age: 59 Year
  Sex: Male
  Weight: 126.98 kg

DRUGS (3)
  1. LYRICA [Suspect]
     Indication: DIABETIC NEUROPATHY
     Dosage: 50 MG, 1X/DAY
     Route: 048
  2. DULOXETINE [Suspect]
     Indication: DEPRESSION
     Dosage: 60 MG, 1X/DAY
     Route: 048
     Dates: start: 201212
  3. ROPINIROLE [Concomitant]
     Dosage: UNK

REACTIONS (1)
  - Depression [Unknown]
